FAERS Safety Report 4911179-7 (Version None)
Quarter: 2006Q1

REPORT INFORMATION
  Report Type: 
  Country: None (occurrence: None)
  Receive Date: 20060209
  Receipt Date: 20060126
  Transmission Date: 20060701
  Serious: Yes (Death)
  Sender: FDA-Public Use
  Company Number: DK200601004952

PATIENT
  Age: 92 Year
  Sex: Female

DRUGS (12)
  1. OLANZAPINE [Suspect]
     Indication: MANIA
     Dosage: 2.5 MG, DAILY (1/D), ORAL
     Route: 048
     Dates: start: 20051222
  2. BACLOFEN [Concomitant]
  3. CITALOPRAM HYDROBROMIDE [Concomitant]
  4. CENTYL (BENDROFLUMETHIAZIDE) [Concomitant]
  5. IMDUR [Concomitant]
  6. POTASSIUM CHLORIDE [Concomitant]
  7. UNILOC (ATENOLOL) [Concomitant]
  8. TIMOLOL MALEATE [Concomitant]
  9. PANODIL - SLOW RELEASE (PARACETAMOL) [Concomitant]
  10. HJERTEMAGNYL (ACETYLSALICYLIC ACID, MAGNESIUM OXIDE HEAVY) [Concomitant]
  11. ACETAMINOPHEN [Concomitant]
  12. MAGNESIA (MAGNESIUM OXIDE) [Concomitant]

REACTIONS (1)
  - DEATH [None]
